FAERS Safety Report 6607855-0 (Version None)
Quarter: 2010Q1

REPORT INFORMATION
  Report Type: 
  Country: None (occurrence: None)
  Receive Date: 20100301
  Receipt Date: 20100104
  Transmission Date: 20100710
  Serious: Yes (Hospitalization)
  Sender: FDA-Public Use
  Company Number: US-ASTRAZENECA-2010SE00103

PATIENT
  Age: 63 Year
  Sex: Female

DRUGS (2)
  1. ARIMIDEX [Suspect]
     Indication: BREAST CANCER
     Dosage: DAILY
     Route: 048
     Dates: start: 20090208
  2. DIOVAN [Concomitant]
     Route: 048
     Dates: start: 20091201

REACTIONS (5)
  - ARTHRALGIA [None]
  - CELLULITIS [None]
  - HYPERTENSION [None]
  - MYALGIA [None]
  - PAROTITIS [None]
